FAERS Safety Report 5982963-6 (Version None)
Quarter: 2008Q4

REPORT INFORMATION
  Report Type: 
  Country: None (occurrence: None)
  Receive Date: 20081208
  Receipt Date: 20081202
  Transmission Date: 20090506
  Serious: Yes (Other)
  Sender: FDA-Public Use
  Company Number: US-JNJCH-2008053892

PATIENT
  Age: 38 Year
  Sex: Male
  Weight: 81.6 kg

DRUGS (1)
  1. VISINE EYE DROPS [Suspect]
     Indication: DRY EYE
     Dosage: TEXT:1 DROP IN LEFT EYE ONE TIME
     Route: 047
     Dates: start: 20081102, end: 20081102

REACTIONS (3)
  - APPLICATION SITE BURN [None]
  - BLINDNESS UNILATERAL [None]
  - PRODUCT QUALITY ISSUE [None]
